FAERS Safety Report 15003637 (Version 2)
Quarter: 2018Q4

REPORT INFORMATION
  Report Type: Report from Study
  Country: US (occurrence: US)
  Receive Date: 20180613
  Receipt Date: 20181207
  Transmission Date: 20190204
  Serious: Yes (Hospitalization, Other)
  Sender: FDA-Public Use
  Company Number: US-ROCHE-2128377

PATIENT
  Age: 76 Year
  Sex: Male
  Weight: 92.72 kg

DRUGS (1)
  1. ATEZOLIZUMAB. [Suspect]
     Active Substance: ATEZOLIZUMAB
     Indication: BLADDER CANCER
     Dosage: OVER 60 MINUTES ON DAY 1?LAST DOSE OF ATEZOLIZUMAB ON 10/MAY/2018 PRIOR TO SAE.
     Route: 042
     Dates: start: 20180510

REACTIONS (4)
  - Urinary retention [Not Recovered/Not Resolved]
  - Sudden hearing loss [Unknown]
  - Hypoacusis [Unknown]
  - Haematuria [Not Recovered/Not Resolved]

NARRATIVE: CASE EVENT DATE: 20180511
